FAERS Safety Report 4530731-4 (Version None)
Quarter: 2004Q4

REPORT INFORMATION
  Report Type: 
  Country: None (occurrence: None)
  Receive Date: 20041217
  Receipt Date: 20041207
  Transmission Date: 20050328
  Serious: Yes (Other)
  Sender: FDA-Public Use
  Company Number: 2004JP002109

PATIENT
  Age: 77 Year
  Sex: Female

DRUGS (5)
  1. CEFAMEZIN [Suspect]
     Indication: DRUG USE FOR UNKNOWN INDICATION
     Dosage: 1.1G PER DAY
     Route: 042
     Dates: start: 20041125, end: 20041125
  2. DIPRIVAN [Suspect]
     Dosage: 350MG PER DAY
     Route: 042
     Dates: start: 20041125, end: 20041125
  3. VECURONIUM BROMIDE [Suspect]
     Route: 042
     Dates: start: 20041125, end: 20041125
  4. FENTANEST [Suspect]
     Route: 042
     Dates: start: 20041125, end: 20041125
  5. EPHEDRINE HYDROCHLORIDE [Suspect]
     Route: 042
     Dates: start: 20041125, end: 20041125

REACTIONS (6)
  - ANAESTHETIC COMPLICATION [None]
  - ANURIA [None]
  - CATHETER PLACEMENT [None]
  - CHROMATURIA [None]
  - MYOGLOBINURIA [None]
  - RENAL FAILURE ACUTE [None]
